FAERS Safety Report 5113776-5 (Version None)
Quarter: 2006Q3

REPORT INFORMATION
  Report Type: 
  Country: None (occurrence: None)
  Receive Date: 20060925
  Receipt Date: 20060908
  Transmission Date: 20061208
  Serious: Yes (Disabling)
  Sender: FDA-Public Use
  Company Number: GB-AVENTIS-200619526GDDC

PATIENT
  Age: 64 Year
  Sex: Female
  Weight: 94 kg

DRUGS (7)
  1. LANTUS [Suspect]
     Indication: DIABETES MELLITUS
     Route: 058
     Dates: start: 20060821, end: 20060908
  2. NOVORAPID [Concomitant]
     Dosage: DOSE: 3, 4, 4
     Dates: start: 20060829
  3. LANSOPRAZOLE [Concomitant]
     Indication: HIATUS HERNIA
     Dates: start: 20010101
  4. ASPIRIN [Concomitant]
     Indication: MYOCARDIAL INFARCTION
     Dates: start: 19900101
  5. LEVOTHYROXINE SODIUM [Concomitant]
     Indication: HYPOTHYROIDISM
     Dates: start: 19900101
  6. SIMVASTATIN [Concomitant]
     Indication: HYPERCHOLESTEROLAEMIA
     Dates: start: 20010101
  7. IRBESARTAN [Concomitant]
     Indication: HYPERTENSION
     Dates: start: 19930101

REACTIONS (9)
  - ARTHRALGIA [None]
  - DISCOMFORT [None]
  - DIZZINESS [None]
  - FATIGUE [None]
  - HEADACHE [None]
  - INSOMNIA [None]
  - MUSCLE SPASMS [None]
  - PAIN [None]
  - PAIN IN EXTREMITY [None]
